FAERS Safety Report 14333323 (Version 1)
Quarter: 2017Q4

REPORT INFORMATION
  Report Type: Spontaneous
  Country: US (occurrence: US)
  Receive Date: 20171228
  Receipt Date: 20171228
  Transmission Date: 20180321
  Serious: No
  Sender: FDA-Public Use
  Company Number: US-009507513-1712USA008193

PATIENT
  Age: 22 Year
  Sex: Female

DRUGS (2)
  1. ETONOGESTREL IMPLANT- UNKNOWN [Suspect]
     Active Substance: ETONOGESTREL
     Dosage: 1 DF, IN HER RIGHT ARM
     Route: 059
     Dates: start: 20150612, end: 20170202
  2. ETONOGESTREL IMPLANT- UNKNOWN [Suspect]
     Active Substance: ETONOGESTREL
     Dosage: 1 DF,IN LEFT ARM
     Route: 059

REACTIONS (5)
  - Vaginal haemorrhage [Unknown]
  - Device expulsion [Recovered/Resolved]
  - Vaginal haemorrhage [Recovering/Resolving]
  - Exposure during pregnancy [Unknown]
  - Device kink [Recovered/Resolved]

NARRATIVE: CASE EVENT DATE: 2015
